FAERS Safety Report 21803814 (Version 1)
Quarter: 2023Q1

REPORT INFORMATION
  Report Type: Report from Study
  Country: US (occurrence: US)
  Receive Date: 20230102
  Receipt Date: 20230102
  Transmission Date: 20230417
  Serious: No
  Sender: FDA-Public Use
  Company Number: US-ACADIA PHARMACEUTICALS INC.-ACA-2022-PIM-004271

PATIENT
  Age: 67 Year
  Sex: Male

DRUGS (1)
  1. NUPLAZID [Suspect]
     Active Substance: PIMAVANSERIN TARTRATE
     Indication: Parkinson^s disease psychosis
     Dosage: 34 MILLIGRAM, QD
     Route: 065
     Dates: start: 20221205

REACTIONS (7)
  - Balance disorder [Unknown]
  - Loss of personal independence in daily activities [Unknown]
  - Sleep disorder [Unknown]
  - Decreased appetite [Unknown]
  - Delusion [Not Recovered/Not Resolved]
  - Peripheral swelling [Unknown]
  - Hallucination [Unknown]

NARRATIVE: CASE EVENT DATE: 20221201
